FAERS Safety Report 24561497 (Version 2)
Quarter: 2024Q4

REPORT INFORMATION
  Report Type: Spontaneous
  Country: RU (occurrence: RU)
  Receive Date: 20241029
  Receipt Date: 20241209
  Transmission Date: 20250115
  Serious: Yes (Hospitalization, Other)
  Sender: SANOFI AVENTIS
  Company Number: RU-BIOVITRUM-2024-RU-013471

PATIENT
  Age: 13 Year
  Sex: Male

DRUGS (2)
  1. ELOCTATE [Suspect]
     Active Substance: EFMOROCTOCOG ALFA
     Indication: Factor VIII deficiency
     Dosage: 2000 IU (40IU/KG), Q3W
     Route: 042
     Dates: start: 20230601
  2. ELOCTATE [Suspect]
     Active Substance: EFMOROCTOCOG ALFA
     Indication: Factor VIII deficiency
     Dosage: 2000 IU (40IU/KG), Q3W
     Route: 042
     Dates: start: 20230601

REACTIONS (4)
  - Partial seizures [Unknown]
  - Epilepsy [Unknown]
  - Head injury [Unknown]
  - Seizure [Unknown]

NARRATIVE: CASE EVENT DATE: 20240801
